FAERS Safety Report 17792996 (Version 1)
Quarter: 2020Q2

REPORT INFORMATION
  Report Type: Spontaneous
  Country: DE (occurrence: DE)
  Receive Date: 20200515
  Receipt Date: 20200515
  Transmission Date: 20200714
  Serious: Yes (Other)
  Sender: FDA-Public Use
  Company Number: NVSC2020DE130300

PATIENT
  Sex: Male

DRUGS (3)
  1. QUETIAPIN - 1 A PHARMA 100 MG FILMTABLETTEN [Suspect]
     Active Substance: QUETIAPINE FUMARATE
     Indication: SEDATION
     Dosage: 200 MG, QD
     Route: 065
  2. QUETIAPIN - 1 A PHARMA 100 MG FILMTABLETTEN [Suspect]
     Active Substance: QUETIAPINE FUMARATE
     Indication: BIPOLAR DISORDER
  3. QUETIAPIN [Concomitant]
     Active Substance: QUETIAPINE
     Indication: PRODUCT USED FOR UNKNOWN INDICATION
     Route: 065

REACTIONS (6)
  - Ocular hypertension [Recovering/Resolving]
  - Fracture [Unknown]
  - Fall [Unknown]
  - Orthostatic hypertension [Unknown]
  - Product quality issue [Unknown]
  - Therapeutic product effect decreased [Unknown]

NARRATIVE: CASE EVENT DATE: 2017
